FAERS Safety Report 10679907 (Version 1)
Quarter: 2014Q4

REPORT INFORMATION
  Report Type: Spontaneous
  Country: TR (occurrence: TR)
  Receive Date: 20141229
  Receipt Date: 20141229
  Transmission Date: 20150529
  Serious: Yes (Life-Threatening, Hospitalization)
  Sender: FDA-Public Use
  Company Number: TR-ACTAVIS-2014-27345

PATIENT
  Age: 48 Year
  Sex: Male
  Weight: 74 kg

DRUGS (1)
  1. SERTRALINE [Suspect]
     Active Substance: SERTRALINE HYDROCHLORIDE
     Indication: MAJOR DEPRESSION
     Dosage: 50 MG, DAILY
     Route: 065

REACTIONS (2)
  - Ventricular fibrillation [Recovered/Resolved]
  - Hypokalaemia [Recovered/Resolved]
